FAERS Safety Report 8524864-5 (Version None)
Quarter: 2012Q3

REPORT INFORMATION
  Report Type: 
  Country: None (occurrence: None)
  Receive Date: 20120720
  Receipt Date: 20120716
  Transmission Date: 20120928
  Serious: Yes (Death, Hospitalization)
  Sender: FDA-Public Use
  Company Number: PHHY2012JP060918

PATIENT
  Age: 77 Year
  Sex: Male

DRUGS (8)
  1. CEFTAZIDIME [Suspect]
     Indication: STAPHYLOCOCCAL INFECTION
  2. CEFTAZIDIME [Suspect]
     Indication: PSEUDOMONAS INFECTION
  3. IMIPENEM AND CILASTATIN [Suspect]
     Indication: PSEUDOMONAS INFECTION
  4. TEICOPLANIN [Suspect]
     Indication: PSEUDOMONAS INFECTION
  5. PREDNISOLONE [Suspect]
     Indication: PEMPHIGUS
     Dosage: 50 MG, UNK
  6. TEICOPLANIN [Suspect]
     Indication: STAPHYLOCOCCAL INFECTION
  7. ISEPAMICIN [Suspect]
  8. IMIPENEM AND CILASTATIN [Suspect]
     Indication: STAPHYLOCOCCAL INFECTION

REACTIONS (16)
  - SINUS TACHYCARDIA [None]
  - THROMBOCYTOPENIA [None]
  - PSEUDOMONAL SEPSIS [None]
  - CANDIDA SEPSIS [None]
  - OEDEMA [None]
  - ABSCESS FUNGAL [None]
  - ASCITES [None]
  - PYREXIA [None]
  - LOSS OF CONSCIOUSNESS [None]
  - ANAEMIA [None]
  - PSEUDOMONAS INFECTION [None]
  - TACHYPNOEA [None]
  - STAPHYLOCOCCAL INFECTION [None]
  - STAPHYLOCOCCAL SEPSIS [None]
  - PLEURAL EFFUSION [None]
  - PANCYTOPENIA [None]
